FAERS Safety Report 5069853-0 (Version None)
Quarter: 2006Q3

REPORT INFORMATION
  Report Type: 
  Country: None (occurrence: None)
  Receive Date: 20060731
  Receipt Date: 20060718
  Transmission Date: 20061208
  Serious: Yes (Other)
  Sender: FDA-Public Use
  Company Number: 2006089992

PATIENT
  Sex: Male

DRUGS (9)
  1. ZYVOX [Suspect]
     Indication: WOUND INFECTION STAPHYLOCOCCAL
     Dosage: 1200 ORAL
     Route: 048
     Dates: start: 20060619, end: 20060629
  2. LASIX [Concomitant]
  3. LANIRAPID (METILDIGOXIN) [Concomitant]
  4. ALDACTONE [Concomitant]
  5. FERROMIA (FERROUS CITRATE) [Concomitant]
  6. VERAPAMIL HYDROCHLORIDE [Concomitant]
  7. PHENYTOIN [Concomitant]
  8. WARFARIN SODIUM [Concomitant]
  9. LEVOFLOXACIN [Concomitant]

REACTIONS (3)
  - INTERNATIONAL NORMALISED RATIO INCREASED [None]
  - PLATELET COUNT DECREASED [None]
  - PROTHROMBIN LEVEL DECREASED [None]
